FAERS Safety Report 4826502-1 (Version None)
Quarter: 2005Q4

REPORT INFORMATION
  Report Type: 
  Country: None (occurrence: None)
  Receive Date: 20051014
  Receipt Date: 20050801
  Transmission Date: 20060501
  Serious: Yes (Other)
  Sender: FDA-Public Use
  Company Number: 2005070424

PATIENT
  Sex: Female
  Weight: 79.3795 kg

DRUGS (3)
  1. MACUGEN [Suspect]
     Indication: MACULAR DEGENERATION
     Dosage: (1 IN 6 WK), INTRAVITREOUS
     Dates: start: 20050418
  2. VITAMINS [Concomitant]
  3. SYNTHROID [Concomitant]

REACTIONS (8)
  - BALANCE DISORDER [None]
  - EYE IRRITATION [None]
  - HEADACHE [None]
  - HYPOAESTHESIA EYE [None]
  - NAUSEA [None]
  - PAIN [None]
  - SENSATION OF PRESSURE [None]
  - SINUS DISORDER [None]
